FAERS Safety Report 8836392 (Version 1)
Quarter: 2012Q4

REPORT INFORMATION
  Report Type: 
  Country: US (occurrence: US)
  Receive Date: 20121011
  Receipt Date: 20121011
  Transmission Date: 20130627
  Serious: No
  Sender: FDA-Public Use
  Company Number: US-009507513-1207USA000852

PATIENT

DRUGS (2)
  1. JANUVIA [Suspect]
     Indication: GLUCOSE TOLERANCE IMPAIRED
     Dosage: UNK
     Route: 048
     Dates: start: 200711, end: 200804
  2. JANUVIA [Suspect]
     Indication: GLUCOSE TOLERANCE IMPAIRED
     Dosage: 1/2 100 mg, qd
     Route: 048
     Dates: start: 20120914

REACTIONS (11)
  - Melaena [Unknown]
  - Vitamin D deficiency [Unknown]
  - Osteoporosis [Unknown]
  - Bone disorder [Unknown]
  - Chondropathy [Unknown]
  - Actinic keratosis [Unknown]
  - Weight decreased [Unknown]
  - Cough [Unknown]
  - Oedema [Unknown]
  - Wrong technique in drug usage process [Unknown]
  - Wrong technique in drug usage process [Unknown]
